FAERS Safety Report 19055722 (Version 1)
Quarter: 2021Q1

REPORT INFORMATION
  Report Type: Spontaneous
  Country: US (occurrence: US)
  Receive Date: 20210324
  Receipt Date: 20210324
  Transmission Date: 20210420
  Serious: No
  Sender: FDA-Public Use
  Company Number: None

PATIENT
  Age: 57 Year
  Sex: Female
  Weight: 85.5 kg

DRUGS (10)
  1. METFORMIN [Concomitant]
     Active Substance: METFORMIN HYDROCHLORIDE
  2. ASPIRIN. [Concomitant]
     Active Substance: ASPIRIN
  3. TYLENOL [Concomitant]
     Active Substance: ACETAMINOPHEN
  4. VALSARTAN AND HYDROCHLOROTHIAZIDE TABLETS 320 MG/25 MG [Suspect]
     Active Substance: HYDROCHLOROTHIAZIDE\VALSARTAN
     Indication: PRODUCT USED FOR UNKNOWN INDICATION
     Dosage: ?          OTHER STRENGTH:1 TABLET DAILY;QUANTITY:1 TABLET(S);?
     Route: 048
     Dates: start: 20210322
  5. VALSARTAN. [Concomitant]
     Active Substance: VALSARTAN
  6. INSULIN [Concomitant]
     Active Substance: INSULIN NOS
  7. FUROSIMIDE [Concomitant]
     Active Substance: FUROSEMIDE
  8. SYNTHROID [Concomitant]
     Active Substance: LEVOTHYROXINE SODIUM
  9. CARVEILOL [Concomitant]
  10. MOTRIN [Concomitant]
     Active Substance: IBUPROFEN

REACTIONS (6)
  - Disorientation [None]
  - Gait disturbance [None]
  - Migraine [None]
  - Product substitution issue [None]
  - Confusional state [None]
  - Amnesia [None]

NARRATIVE: CASE EVENT DATE: 20210323
